FAERS Safety Report 4823483-1 (Version None)
Quarter: 2005Q4

REPORT INFORMATION
  Report Type: 
  Country: None (occurrence: None)
  Receive Date: 20051107
  Receipt Date: 20051019
  Transmission Date: 20060501
  Serious: Yes (Hospitalization)
  Sender: FDA-Public Use
  Company Number: TRP_0632_2005

PATIENT
  Age: 46 Year
  Sex: Male

DRUGS (2)
  1. RIBASPHERE [Suspect]
     Indication: HEPATITIS C
     Dosage: 1200 MG QDAY PO
     Route: 048
     Dates: start: 20050923
  2. PEG-INTRON [Suspect]
     Indication: HEPATITIS C
     Dosage: 150 MCG QWK SC
     Route: 058
     Dates: start: 20050923

REACTIONS (7)
  - DEHYDRATION [None]
  - FALL [None]
  - HEAD INJURY [None]
  - HYPOTENSION [None]
  - LACERATION [None]
  - LOSS OF CONSCIOUSNESS [None]
  - VOMITING [None]
